FAERS Safety Report 7709392-9 (Version None)
Quarter: 2011Q3

REPORT INFORMATION
  Report Type: 
  Country: None (occurrence: None)
  Receive Date: 20110819
  Receipt Date: 20110810
  Transmission Date: 20111222
  Serious: Yes (Other)
  Sender: FDA-Public Use
  Company Number: DSA_45254_2011

PATIENT
  Age: 49 Year
  Sex: Female

DRUGS (7)
  1. LASIX [Suspect]
     Indication: PRODUCT USED FOR UNKNOWN INDICATION
     Dosage: (DF ORAL)
     Route: 048
     Dates: end: 20101109
  2. DIFFU-K (DIFFU-K-POTASSIUM CHLORIDE) (NOT SPECIFIED) [Suspect]
     Indication: PRODUCT USED FOR UNKNOWN INDICATION
     Dosage: (1 CAPSULE TWICE A DAY ORAL)
     Route: 048
     Dates: end: 20101109
  3. LEVOTHYROXINE SODIUM [Suspect]
     Indication: PRODUCT USED FOR UNKNOWN INDICATION
     Dosage: (75 UG QD ORAL)
     Route: 048
     Dates: start: 20060101
  4. ENALAPRIL MALEATE [Suspect]
     Indication: HYPERTENSION
     Dosage: (DF ORAL)
     Route: 048
  5. AMLOR (AMLOR-AMLODIPINE BESYLATE) (NOT SPECIFIED) [Suspect]
     Indication: PRODUCT USED FOR UNKNOWN INDICATION
     Dosage: (DF ORAL)
     Route: 048
     Dates: start: 20070101, end: 20101109
  6. MEDIATOR (MEDIATOR-BENFLUOREX HCL) (NOT SPECIFIED) [Suspect]
     Indication: TYPE 2 DIABETES MELLITUS
     Dosage: (DF ORAL)
     Route: 048
     Dates: start: 20000916, end: 20091101
  7. TAHOR (TAHOR-ATORVASTATIN CALCIUM) (NOT SPECIFIED) [Suspect]
     Indication: PRODUCT USED FOR UNKNOWN INDICATION
     Dosage: (DF ORAL)
     Route: 048
     Dates: start: 20070101, end: 20101109

REACTIONS (6)
  - VENOUS INSUFFICIENCY [None]
  - PULMONARY ARTERIAL HYPERTENSION [None]
  - DYSPNOEA [None]
  - HEART VALVE INCOMPETENCE [None]
  - AORTIC VALVE DISEASE [None]
  - MITRAL VALVE DISEASE [None]
